FAERS Safety Report 7683471-7 (Version None)
Quarter: 2011Q3

REPORT INFORMATION
  Report Type: 
  Country: None (occurrence: None)
  Receive Date: 20110815
  Receipt Date: 20110805
  Transmission Date: 20111222
  Serious: Yes (Life-Threatening, Hospitalization)
  Sender: FDA-Public Use
  Company Number: JP-PFIZER INC-2011060041

PATIENT
  Age: 6 Week
  Sex: Female
  Weight: 2.68 kg

DRUGS (11)
  1. AMIODARONE HCL [Suspect]
     Indication: NODAL ARRHYTHMIA
     Dosage: 10 MG, 2X/DAY
     Route: 048
     Dates: start: 20100626, end: 20100711
  2. SIGMART [Concomitant]
     Dosage: 3 MG, 2X/DAY
     Route: 048
     Dates: start: 20100712, end: 20100724
  3. SOTALOL HYDROCHLORIDE [Concomitant]
     Dosage: UNK
     Route: 064
  4. AMIODARONE HCL [Suspect]
     Dosage: 35 MG, 2X/DAY
     Route: 048
     Dates: start: 20100713, end: 20100724
  5. INTEDARU [Concomitant]
     Dosage: 12 MG, 3X/DAY
     Dates: start: 20100723
  6. AMIODARONE HCL [Suspect]
     Dosage: 10 MG ONCE AND 35 MG ONCE (TOTAL 45 MG/DAY)
     Route: 048
     Dates: start: 20100712, end: 20100712
  7. DIGOXIN [Concomitant]
     Dosage: UNK
     Route: 064
  8. INTEDARU [Concomitant]
     Indication: PULSE ABNORMAL
     Dosage: 3 MG, 3X/DAY
     Dates: start: 20100620, end: 20100622
  9. INTEDARU [Concomitant]
     Dosage: 6 MG, 3X/DAY
     Dates: start: 20100623, end: 20100722
  10. AMIODARONE HCL [Suspect]
     Dosage: 5 MG/KG, SINGLE
     Route: 042
     Dates: start: 20100610, end: 20100610
  11. SHINBIT [Concomitant]
     Dosage: UNK
     Dates: start: 20100617, end: 20100625

REACTIONS (2)
  - ELECTROCARDIOGRAM QRS COMPLEX PROLONGED [None]
  - VENTRICULAR TACHYCARDIA [None]
